FAERS Safety Report 10644365 (Version 5)
Quarter: 2015Q3

REPORT INFORMATION
  Report Type: Report from Study
  Country: US (occurrence: US)
  Receive Date: 20141210
  Receipt Date: 20150727
  Transmission Date: 20151125
  Serious: Yes (Hospitalization, Other)
  Sender: FDA-Public Use
  Company Number: US-GLAXOSMITHKLINE-US2014GSK031317

PATIENT
  Age: 41 Year
  Sex: Female
  Weight: 72.3 kg

DRUGS (2)
  1. BELIMUMAB POWDER FOR INFUSION [Suspect]
     Active Substance: BELIMUMAB
     Indication: SYSTEMIC LUPUS ERYTHEMATOSUS
     Dosage: 10 MG/KG, CYC
     Route: 042
     Dates: start: 20141016
  2. ANTIMALARIALS (NOS) [Concomitant]
     Active Substance: UNSPECIFIED INGREDIENT
     Dosage: 200 MG, BID
     Dates: start: 20140611

REACTIONS (1)
  - Postoperative abscess [Recovered/Resolved]

NARRATIVE: CASE EVENT DATE: 20141118
